FAERS Safety Report 24460838 (Version 1)
Quarter: 2024Q4

REPORT INFORMATION
  Report Type: Report from Study
  Country: US (occurrence: US)
  Receive Date: 20241018
  Receipt Date: 20241018
  Transmission Date: 20250115
  Serious: No
  Sender: ROCHE
  Company Number: US-ROCHE-3561227

PATIENT
  Age: 58 Year
  Sex: Female

DRUGS (3)
  1. RITUXAN HYCELA [Suspect]
     Active Substance: HYALURONIDASE (HUMAN RECOMBINANT)\RITUXIMAB
     Indication: Uveitis
     Dosage: EVERY 6 MONTHS? FREQUENCY TEXT:DAY 1 AND DAY 15
     Route: 065
  2. RITUXAN HYCELA [Suspect]
     Active Substance: HYALURONIDASE (HUMAN RECOMBINANT)\RITUXIMAB
     Indication: Multiple sclerosis
  3. CELLCEPT [Concomitant]
     Active Substance: MYCOPHENOLATE MOFETIL

REACTIONS (2)
  - Off label use [Unknown]
  - No adverse event [Unknown]
